FAERS Safety Report 16724928 (Version 2)
Quarter: 2020Q2

REPORT INFORMATION
  Report Type: Spontaneous
  Country: DK (occurrence: DK)
  Receive Date: 20190821
  Receipt Date: 20200504
  Transmission Date: 20200713
  Serious: Yes (Other)
  Sender: FDA-Public Use
  Company Number: DK-MYLANLABS-2019M1077510

PATIENT
  Age: 16 Year
  Sex: Male

DRUGS (1)
  1. RISPERIDONE. [Suspect]
     Active Substance: RISPERIDONE
     Indication: TOURETTE^S DISORDER
     Dosage: 2 MILLIGRAM, QD,STYRKE: 0.5 MG.
     Route: 048
     Dates: start: 20161206

REACTIONS (7)
  - Altered state of consciousness [Unknown]
  - Depression [Unknown]
  - Obsessive-compulsive disorder [Unknown]
  - Musculoskeletal stiffness [Unknown]
  - Disturbance in attention [Unknown]
  - Apathy [Unknown]
  - Depressed mood [Unknown]
